FAERS Safety Report 5028491-6 (Version None)
Quarter: 2006Q2

REPORT INFORMATION
  Report Type: 
  Country: None (occurrence: None)
  Receive Date: 20060617
  Receipt Date: 20060610
  Transmission Date: 20061013
  Serious: Yes (Other)
  Sender: FDA-Public Use
  Company Number: BR-JNJFOC-20060603027

PATIENT
  Age: 18 Month
  Sex: Male
  Weight: 12 kg

DRUGS (7)
  1. TYLENOL BEBE [Suspect]
     Route: 048
  2. TYLENOL BEBE [Suspect]
     Indication: UPPER RESPIRATORY TRACT INFECTION
     Route: 048
  3. CEFACLOR [Concomitant]
     Indication: UPPER RESPIRATORY TRACT INFECTION
     Route: 048
  4. PREDNISOLONE [Concomitant]
     Indication: UPPER RESPIRATORY TRACT INFECTION
     Route: 048
  5. IBUPROFEN [Concomitant]
     Indication: UPPER RESPIRATORY TRACT INFECTION
     Route: 048
  6. ACETYLCYSTEINE FLUDROCORTISONE [Concomitant]
     Indication: UPPER RESPIRATORY TRACT INFECTION
     Route: 045
  7. BENZALKONIUM CHLORIDE [Concomitant]

REACTIONS (1)
  - HYPOTHERMIA [None]
